FAERS Safety Report 6174354-2 (Version None)
Quarter: 2009Q2

REPORT INFORMATION
  Report Type: 
  Country: None (occurrence: None)
  Receive Date: 20090430
  Receipt Date: 20090223
  Transmission Date: 20091009
  Serious: No
  Sender: FDA-Public Use
  Company Number: US-BAYER-200910658BCC

PATIENT
  Age: 78 Year
  Sex: Female
  Weight: 77 kg

DRUGS (9)
  1. ALEVE [Suspect]
     Indication: INFLAMMATION
     Dosage: TOTAL DAILY DOSE: 440 MG  UNIT DOSE: 220 MG
     Route: 048
     Dates: start: 20090219, end: 20090220
  2. ALEVE [Suspect]
     Dosage: TOTAL DAILY DOSE: 220 MG  UNIT DOSE: 220 MG
     Route: 048
     Dates: start: 20090221
  3. PREVACID [Concomitant]
     Route: 065
  4. HYDROCHLOROTHIAZIDE [Concomitant]
     Route: 065
  5. NORVASC [Concomitant]
     Route: 065
  6. TOPROL-XL [Concomitant]
     Route: 065
  7. POTASSIUM CHLORIDE [Concomitant]
     Route: 065
  8. PREMARIN [Concomitant]
     Route: 065
  9. SYNTHROID [Concomitant]
     Route: 065

REACTIONS (3)
  - FEELING JITTERY [None]
  - INSOMNIA [None]
  - NERVOUSNESS [None]
